FAERS Safety Report 4709461-1 (Version None)
Quarter: 2005Q3

REPORT INFORMATION
  Report Type: 
  Country: None (occurrence: None)
  Receive Date: 20050708
  Receipt Date: 20050627
  Transmission Date: 20060218
  Serious: Yes (Other)
  Sender: FDA-Public Use
  Company Number: FR-GLAXOSMITHKLINE-B0386888A

PATIENT
  Age: 55 Year
  Sex: Female

DRUGS (2)
  1. DEROXAT [Suspect]
     Indication: ILL-DEFINED DISORDER
     Dosage: 20MG PER DAY
     Route: 048
  2. ACETAMINOPHEN [Concomitant]
     Route: 048

REACTIONS (2)
  - ERYTHEMA MULTIFORME [None]
  - FIXED ERUPTION [None]
